FAERS Safety Report 20418967 (Version 1)
Quarter: 2022Q1

REPORT INFORMATION
  Report Type: Spontaneous
  Country: US (occurrence: US)
  Receive Date: 20220202
  Receipt Date: 20220202
  Transmission Date: 20220423
  Serious: No
  Sender: FDA-Public Use
  Company Number: US-CELGENE-USA-20220107499

PATIENT
  Sex: Female

DRUGS (1)
  1. POMALYST [Suspect]
     Active Substance: POMALIDOMIDE
     Indication: Plasma cell myeloma recurrent
     Dosage: 2 MILLIGRAM
     Route: 048
     Dates: start: 202107

REACTIONS (6)
  - Asthenia [Unknown]
  - Hypersomnia [Unknown]
  - Contusion [Unknown]
  - Pain [Unknown]
  - Fall [Unknown]
  - Dizziness [Unknown]
